FAERS Safety Report 12474357 (Version 1)
Quarter: 2016Q2

REPORT INFORMATION
  Report Type: Spontaneous
  Country: US (occurrence: None)
  Receive Date: 20160616
  Receipt Date: 20160616
  Transmission Date: 20160815
  Serious: No
  Sender: FDA-Public Use
  Company Number: None

PATIENT
  Age: 45 Year
  Sex: Female

DRUGS (1)
  1. REBIF [Suspect]
     Active Substance: INTERFERON BETA-1A
     Indication: MULTIPLE SCLEROSIS
     Dosage: 22MCG. TIW INJ.
     Dates: start: 201412

REACTIONS (4)
  - Confusional state [None]
  - Anger [None]
  - Thinking abnormal [None]
  - Bone pain [None]

NARRATIVE: CASE EVENT DATE: 2016
